FAERS Safety Report 18604478 (Version 1)
Quarter: 2020Q4

REPORT INFORMATION
  Report Type: Report from Study
  Country: IT (occurrence: IT)
  Receive Date: 20201211
  Receipt Date: 20201211
  Transmission Date: 20210114
  Serious: Yes (Hospitalization)
  Sender: FDA-Public Use
  Company Number: IT-TEVA-2020-IT-1856670

PATIENT
  Age: 96 Year
  Sex: Male

DRUGS (5)
  1. CARDIOASPIRIN 100 MG COMPRESSE GASTRORESISTENTI [Concomitant]
     Active Substance: ASPIRIN
  2. LANTUS [Concomitant]
     Active Substance: INSULIN GLARGINE
  3. NEBIVOLOL. [Suspect]
     Active Substance: NEBIVOLOL
     Indication: HYPERTENSION
     Dosage: 1 DOSAGE FORMS
     Route: 048
     Dates: start: 20160101, end: 20200917
  4. DUTASTERIDE. [Concomitant]
     Active Substance: DUTASTERIDE
  5. TRAJENTA 5MG FILM-COATED TABLETS [Concomitant]
     Active Substance: LINAGLIPTIN

REACTIONS (5)
  - Vertigo [Recovering/Resolving]
  - Blood pressure increased [Recovering/Resolving]
  - Speech disorder [Recovering/Resolving]
  - Loss of consciousness [Recovering/Resolving]
  - Drug ineffective [Recovering/Resolving]

NARRATIVE: CASE EVENT DATE: 20200917
